FAERS Safety Report 24360449 (Version 1)
Quarter: 2024Q3

REPORT INFORMATION
  Report Type: Other
  Country: IT (occurrence: IT)
  Receive Date: 20240925
  Receipt Date: 20240925
  Transmission Date: 20241017
  Serious: Yes (Other)
  Sender: DEXCEL
  Company Number: IT-DEXPHARM-2024-3205

PATIENT
  Age: 52 Year
  Sex: Male

DRUGS (2)
  1. DICLOFENAC [Suspect]
     Active Substance: DICLOFENAC
     Dosage: TWICE DAILY
     Route: 061
  2. Oxibuprocaine [Concomitant]
     Indication: Anaesthesia
     Dosage: 4 MG/ML
     Route: 061

REACTIONS (3)
  - Corneal perforation [Recovered/Resolved]
  - Corneal flap complication [Recovered/Resolved]
  - Corneal disorder [Recovered/Resolved]
